FAERS Safety Report 8341997-7 (Version None)
Quarter: 2012Q2

REPORT INFORMATION
  Report Type: 
  Country: None (occurrence: None)
  Receive Date: 20120507
  Receipt Date: 20120423
  Transmission Date: 20120825
  Serious: Yes (Hospitalization, Other)
  Sender: FDA-Public Use
  Company Number: US-MYLANLABS-2008AL011326

PATIENT
  Age: 72 Year
  Sex: Female
  Weight: 73 kg

DRUGS (85)
  1. DIGOXIN [Suspect]
     Indication: CARDIAC OPERATION
     Route: 048
  2. DETROL [Concomitant]
  3. ZYMAR [Concomitant]
  4. PREDNISOLONE [Concomitant]
  5. SIMVASTATIN [Concomitant]
  6. CIPROFLOXACIN [Concomitant]
  7. AMOXICILLIN [Concomitant]
  8. BUTALBITAL [Concomitant]
  9. ALPRAZOLAM [Concomitant]
  10. NULEV /00064702/ [Concomitant]
  11. PREMARIN [Concomitant]
  12. SONATA [Concomitant]
  13. GENTAMICIN [Concomitant]
  14. BACTROBAN [Concomitant]
  15. IBUPROFEN [Concomitant]
  16. LOVENOX [Concomitant]
  17. CYMBALTA [Concomitant]
  18. CLOPIDOGREL [Concomitant]
  19. HYDROCODONE BITARTRATE [Concomitant]
  20. HYOSCYAMINE [Concomitant]
  21. LESCOL [Concomitant]
  22. FLORA Q [Concomitant]
  23. SINGULAIR [Concomitant]
  24. LORTAB [Concomitant]
  25. ZOFRAN [Concomitant]
  26. PROPOXYPHENE HYDROCHLORIDE [Concomitant]
  27. LORAZEPAM [Concomitant]
  28. ALLEGRA [Concomitant]
  29. Q-TUSSIN [Concomitant]
  30. BIAXIN [Concomitant]
  31. LISINOPRIL [Concomitant]
  32. METOCLOPRAMIDE [Concomitant]
  33. NYSTATIN [Concomitant]
  34. ATENOLOL [Concomitant]
  35. NORVASC [Concomitant]
  36. COLACE [Concomitant]
  37. TRIAMTERENE [Concomitant]
  38. ZETIA [Concomitant]
  39. PROCTOSOL [Concomitant]
  40. ZOLOFT [Concomitant]
  41. CEPHALEXIN [Concomitant]
  42. OXYCODONE HCL [Concomitant]
  43. PAROXETINE [Concomitant]
  44. HALOPERIDOL [Concomitant]
  45. ALLEGRA [Concomitant]
  46. CELEBREX [Concomitant]
  47. FERROUS SULFATE TAB [Concomitant]
  48. VITAMIN B-12 [Concomitant]
  49. MEGACE [Concomitant]
  50. TRICOR [Concomitant]
  51. ZYRTEC [Concomitant]
  52. PAXIL [Concomitant]
  53. LUNESTA [Concomitant]
  54. TRAMADOL HYDROCHLORIDE [Concomitant]
  55. AMBIEN [Concomitant]
  56. INDOMETHACIN [Concomitant]
  57. LEVAQUIN [Concomitant]
  58. MULTI-VITAMIN [Concomitant]
  59. SONATA [Concomitant]
  60. AMLODIPINE [Concomitant]
  61. ARICEPT [Concomitant]
  62. RANITIDINE [Concomitant]
  63. HYDROCORTISONE [Concomitant]
  64. PREVACID [Concomitant]
  65. GUAIFENESIN [Concomitant]
  66. POTASSIUM CHLORIDE [Concomitant]
  67. DARVOCET [Concomitant]
  68. PLAVIX [Concomitant]
  69. MEGESTROL ACETATE [Concomitant]
  70. NAPROXEN [Concomitant]
  71. ULTRACET [Concomitant]
  72. CHLORZOXAZONE [Concomitant]
  73. BUSPIRONE HCL [Concomitant]
  74. AMIODARONE HCL [Concomitant]
  75. METOPROLOL TARTRATE [Concomitant]
  76. BENZONATATE [Concomitant]
  77. FEXOFENADINE [Concomitant]
  78. MORPHINE [Concomitant]
  79. ZOCOR [Concomitant]
  80. CYANOCOBALAMIN [Concomitant]
  81. ASPIRIN [Concomitant]
  82. NIRAVAM [Concomitant]
  83. ZITHROMAX [Concomitant]
  84. CYANOCOBALAMIN [Concomitant]
  85. JEVITY [Concomitant]

REACTIONS (71)
  - NAUSEA [None]
  - HYPOKALAEMIA [None]
  - DEMENTIA [None]
  - MENTAL STATUS CHANGES [None]
  - INJURY [None]
  - ECONOMIC PROBLEM [None]
  - FATIGUE [None]
  - EMOTIONAL DISTRESS [None]
  - IRRITABILITY [None]
  - MEMORY IMPAIRMENT [None]
  - SYNCOPE [None]
  - OESOPHAGITIS [None]
  - UTERINE HAEMORRHAGE [None]
  - HYPOPHOSPHATAEMIA [None]
  - RETCHING [None]
  - VOMITING [None]
  - PAIN [None]
  - ILL-DEFINED DISORDER [None]
  - ANHEDONIA [None]
  - DECREASED APPETITE [None]
  - FAILURE TO THRIVE [None]
  - POLLAKIURIA [None]
  - CORONARY ARTERY BYPASS [None]
  - CATHETERISATION CARDIAC [None]
  - PELVIC MASS [None]
  - POSTOPERATIVE ILEUS [None]
  - HYPOMAGNESAEMIA [None]
  - ATRIOVENTRICULAR BLOCK SECOND DEGREE [None]
  - PROTEUS INFECTION [None]
  - CEREBROVASCULAR ACCIDENT [None]
  - LEUKOCYTOSIS [None]
  - CHEST PAIN [None]
  - LIMB INJURY [None]
  - APHASIA [None]
  - TOXICITY TO VARIOUS AGENTS [None]
  - ANXIETY [None]
  - LOSS OF CONSCIOUSNESS [None]
  - URINARY TRACT INFECTION [None]
  - ATELECTASIS [None]
  - ABDOMINAL PAIN [None]
  - CERVICAL SPINAL STENOSIS [None]
  - LEFT VENTRICULAR DYSFUNCTION [None]
  - ELECTROCARDIOGRAM ST-T SEGMENT ABNORMAL [None]
  - DRUG LEVEL ABOVE THERAPEUTIC [None]
  - POSTOPERATIVE WOUND INFECTION [None]
  - SICK SINUS SYNDROME [None]
  - BLOOD POTASSIUM DECREASED [None]
  - UTERINE LEIOMYOMA [None]
  - ANAEMIA [None]
  - NUCLEAR MAGNETIC RESONANCE IMAGING BRAIN ABNORMAL [None]
  - HEADACHE [None]
  - GASTROINTESTINAL TUBE INSERTION [None]
  - PLEURAL EFFUSION [None]
  - BLOOD GLUCOSE INCREASED [None]
  - BIOPSY ENDOMETRIUM ABNORMAL [None]
  - ILEUS [None]
  - AORTIC ANEURYSM [None]
  - ALTERED STATE OF CONSCIOUSNESS [None]
  - CARDIAC PACEMAKER INSERTION [None]
  - CONFUSIONAL STATE [None]
  - ANGINA PECTORIS [None]
  - VAGINAL HAEMORRHAGE [None]
  - DEMENTIA ALZHEIMER'S TYPE [None]
  - ORAL CANDIDIASIS [None]
  - DIZZINESS [None]
  - UTERINE STENOSIS [None]
  - ENCEPHALOPATHY [None]
  - DYSPNOEA [None]
  - FALL [None]
  - BRADYCARDIA [None]
  - OSTEOARTHRITIS [None]
